FAERS Safety Report 6526585-7 (Version None)
Quarter: 2010Q1

REPORT INFORMATION
  Report Type: 
  Country: None (occurrence: None)
  Receive Date: 20100105
  Receipt Date: 20091230
  Transmission Date: 20100710
  Serious: Yes (Death, Hospitalization)
  Sender: FDA-Public Use
  Company Number: ES-SANOFI-AVENTIS-200821340GDDC

PATIENT
  Age: 65 Year
  Sex: Male
  Weight: 82 kg

DRUGS (16)
  1. AFLIBERCEPT [Suspect]
     Route: 042
     Dates: start: 20081113, end: 20081113
  2. DOCETAXEL [Suspect]
     Route: 042
     Dates: start: 20080707, end: 20080707
  3. PRINIVIL [Concomitant]
     Dosage: DOSE AS USED: UNK
  4. LANTUS [Concomitant]
     Dosage: DOSE AS USED: UNK
  5. PANTOPRAZOLE [Concomitant]
     Dosage: DOSE AS USED: UNK
     Dates: start: 20080316, end: 20080327
  6. CIPROFLOXACIN [Concomitant]
     Dosage: DOSE AS USED: UNK
     Dates: start: 20080317, end: 20080327
  7. ENANTYUM [Concomitant]
     Dosage: DOSE AS USED: UNK
     Dates: start: 20080317, end: 20080327
  8. DURAGESIC-100 [Concomitant]
     Dosage: DOSE AS USED: UNK
     Dates: start: 20080317, end: 20080327
  9. DURAGESIC-100 [Concomitant]
     Dosage: DOSE AS USED: UNK
     Dates: start: 20080530
  10. AMOXICILLIN SODIUM/CLAVULANATE POTASSIUM [Concomitant]
     Dosage: DOSE AS USED: UNK
     Dates: start: 20080530, end: 20080530
  11. ATROVENT [Concomitant]
     Dosage: DOSE AS USED: UNK
     Dates: start: 20080530, end: 20080603
  12. CEFEPIME [Concomitant]
     Dosage: DOSE AS USED: UNK
     Dates: start: 20080530, end: 20080603
  13. NEUPOGEN [Concomitant]
     Dosage: DOSE AS USED: UNK
     Dates: start: 20080530, end: 20080603
  14. CLEXANE /NET/ [Concomitant]
     Dosage: DOSE AS USED: UNK
     Dates: start: 20080530, end: 20080603
  15. NYLIDRIN [Concomitant]
     Dosage: DOSE AS USED: UNK
     Dates: start: 20080611
  16. CORTICOSTEROIDS [Concomitant]

REACTIONS (2)
  - DISEASE PROGRESSION [None]
  - PERIPHERAL ISCHAEMIA [None]
